FAERS Safety Report 7464755-4 (Version None)
Quarter: 2011Q2

REPORT INFORMATION
  Report Type: 
  Country: None (occurrence: None)
  Receive Date: 20110509
  Receipt Date: 20110411
  Transmission Date: 20111010
  Serious: Yes (Hospitalization, Other)
  Sender: FDA-Public Use
  Company Number: US-BAYER-201041604NA

PATIENT
  Age: 43 Year
  Sex: Female

DRUGS (5)
  1. VITAMIN D [Concomitant]
  2. ADVAIR DISKUS 100/50 [Concomitant]
  3. YAZ [Suspect]
     Indication: PRODUCT USED FOR UNKNOWN INDICATION
     Route: 048
     Dates: start: 20080101, end: 20081101
  4. LOSARTAN [Concomitant]
  5. ALBUTEROL [Concomitant]

REACTIONS (3)
  - APHASIA [None]
  - PULMONARY EMBOLISM [None]
  - CEREBRAL ARTERY OCCLUSION [None]
